FAERS Safety Report 6479576-9 (Version None)
Quarter: 2009Q4

REPORT INFORMATION
  Report Type: 
  Country: None (occurrence: None)
  Receive Date: 20091207
  Receipt Date: 20091207
  Transmission Date: 20100525
  Serious: Yes (Hospitalization)
  Sender: FDA-Public Use
  Company Number: None

PATIENT
  Sex: Male
  Weight: 38.3 kg

DRUGS (10)
  1. AVASTIN [Suspect]
     Indication: GLIOMA
     Dosage: 10 MG/KG DOSE IV
     Route: 042
     Dates: start: 20090618
  2. AVASTIN [Suspect]
     Indication: GLIOMA
     Dosage: 10 MG/KG DOSE IV
     Route: 042
     Dates: start: 20090701
  3. IRINOTECAN HCL [Suspect]
     Indication: GLIOMA
     Dosage: 125 MG/M2/DOSE IV
     Route: 042
     Dates: start: 20090813
  4. IRINOTECAN HCL [Suspect]
     Indication: GLIOMA
     Dosage: 125 MG/M2/DOSE IV
     Route: 042
     Dates: start: 20090827
  5. METHYLPHENIDATE HCL [Concomitant]
  6. ZYRTEC [Concomitant]
  7. KYTRIL [Concomitant]
  8. LIDOCAINE [Concomitant]
  9. IMODIUM [Concomitant]
  10. PENTAMIDINE ISETHIONATE [Concomitant]

REACTIONS (1)
  - NO ADVERSE EVENT [None]
